FAERS Safety Report 23942783 (Version 2)
Quarter: 2024Q2

REPORT INFORMATION
  Report Type: Spontaneous
  Country: ES (occurrence: ES)
  Receive Date: 20240605
  Receipt Date: 20240612
  Transmission Date: 20240716
  Serious: Yes (Hospitalization)
  Sender: FDA-Public Use
  Company Number: ES-Eisai-EC-2024-167118

PATIENT
  Age: 19 Year
  Sex: Female

DRUGS (4)
  1. FYCOMPA [Suspect]
     Active Substance: PERAMPANEL
     Indication: Epilepsy
     Route: 041
     Dates: start: 20240117
  2. FYCOMPA [Suspect]
     Active Substance: PERAMPANEL
     Dosage: DOSE UNKNOWN?DOSE INCREASED
     Route: 041
     Dates: start: 2024
  3. PAROXETINE [Concomitant]
     Active Substance: PAROXETINE
     Indication: Epilepsy
  4. LACOSAMIDE [Concomitant]
     Active Substance: LACOSAMIDE
     Indication: Epilepsy

REACTIONS (1)
  - Encephalitis [Recovered/Resolved with Sequelae]

NARRATIVE: CASE EVENT DATE: 20240122
